FAERS Safety Report 10094691 (Version 1)
Quarter: 2014Q2

REPORT INFORMATION
  Report Type: Spontaneous
  Country: FR (occurrence: FR)
  Receive Date: 20140422
  Receipt Date: 20140422
  Transmission Date: 20141212
  Serious: Yes (Hospitalization)
  Sender: FDA-Public Use
  Company Number: FR-SA-2014SA044063

PATIENT
  Age: 96 Year
  Sex: Female

DRUGS (7)
  1. IRBESARTAN [Suspect]
     Indication: HYPERTENSION
     Route: 065
     Dates: start: 201304, end: 20131214
  2. SOLACY [Suspect]
     Indication: PRODUCT USED FOR UNKNOWN INDICATION
     Route: 065
     Dates: start: 201310, end: 201311
  3. PNEUMOREL [Suspect]
     Indication: PRODUCT USED FOR UNKNOWN INDICATION
     Route: 065
     Dates: start: 201310, end: 201311
  4. VITAMINS NOS [Suspect]
     Indication: PRODUCT USED FOR UNKNOWN INDICATION
     Route: 065
  5. SECTRAL [Concomitant]
  6. LASILIX [Concomitant]
  7. ALL OTHER THERAPEUTIC PRODUCTS [Concomitant]

REACTIONS (2)
  - Drug eruption [Recovered/Resolved]
  - Erythema [Recovered/Resolved]
